FAERS Safety Report 24718507 (Version 1)
Quarter: 2024Q4

REPORT INFORMATION
  Report Type: Spontaneous
  Country: US (occurrence: None)
  Receive Date: 20241210
  Receipt Date: 20241210
  Transmission Date: 20250115
  Serious: Yes (Hospitalization)
  Sender: Public
  Company Number: None

PATIENT
  Age: 51 Year
  Sex: Male

DRUGS (1)
  1. CLINDAMYCIN HYDROCHLORIDE [Suspect]
     Active Substance: CLINDAMYCIN HYDROCHLORIDE
     Dosage: FREQUENCY : 3 TIMES A DAY;?
     Route: 048
     Dates: end: 20211123

REACTIONS (9)
  - Dyspnoea [None]
  - Throat tightness [None]
  - Tachycardia [None]
  - Hypotension [None]
  - Wheezing [None]
  - Oropharyngeal pain [None]
  - Swelling [None]
  - Odynophagia [None]
  - Therapy cessation [None]

NARRATIVE: CASE EVENT DATE: 20211123
